FAERS Safety Report 8569482-8 (Version None)
Quarter: 2012Q3

REPORT INFORMATION
  Report Type: 
  Country: None (occurrence: None)
  Receive Date: 20120803
  Receipt Date: 20120308
  Transmission Date: 20120928
  Serious: No
  Sender: FDA-Public Use
  Company Number: US-ABBOTT-12P-163-0912891-00

PATIENT
  Sex: Male

DRUGS (5)
  1. NIASPAN [Suspect]
     Indication: TOTAL CHOLESTEROL/HDL RATIO ABNORMAL
     Dosage: AT BED TIME
     Dates: start: 20110301
  2. NIASPAN [Suspect]
     Indication: LDL/HDL RATIO
     Dosage: AT BED TIME
     Dates: end: 20120108
  3. SIMVASTATIN [Concomitant]
     Indication: PRODUCT USED FOR UNKNOWN INDICATION
  4. PLAVIX [Concomitant]
     Indication: PRODUCT USED FOR UNKNOWN INDICATION
  5. COUMADIN [Concomitant]
     Indication: PRODUCT USED FOR UNKNOWN INDICATION

REACTIONS (8)
  - HOT FLUSH [None]
  - HYPERHIDROSIS [None]
  - CHILLS [None]
  - ERYTHEMA [None]
  - BURNING SENSATION [None]
  - RASH MACULAR [None]
  - PRURITUS [None]
  - FEELING COLD [None]
